FAERS Safety Report 9868494 (Version 1)
Quarter: 2014Q1

REPORT INFORMATION
  Report Type: Spontaneous
  Country: BR (occurrence: BR)
  Receive Date: 20140204
  Receipt Date: 20140204
  Transmission Date: 20141002
  Serious: Yes (Hospitalization)
  Sender: FDA-Public Use
  Company Number: BR-ASTRAZENECA-2014SE07176

PATIENT
  Sex: Female

DRUGS (6)
  1. TREZOR [Suspect]
     Route: 048
  2. BRILINTA [Suspect]
     Dosage: 850 MG
     Route: 048
     Dates: start: 2012
  3. CONCOR [Concomitant]
     Indication: CARDIAC DISORDER
  4. ASPIRINA PREVENT [Concomitant]
     Indication: ANTICOAGULANT THERAPY
  5. RIVOTRIL [Concomitant]
  6. ZOLOFT [Concomitant]

REACTIONS (1)
  - Visual impairment [Unknown]
